FAERS Safety Report 8153675-8 (Version None)
Quarter: 2012Q1

REPORT INFORMATION
  Report Type: 
  Country: None (occurrence: None)
  Receive Date: 20120221
  Receipt Date: 20120213
  Transmission Date: 20120608
  Serious: Yes (Other)
  Sender: FDA-Public Use
  Company Number: US-ABBOTT-12P-163-0904377-00

PATIENT
  Sex: Male
  Weight: 89.892 kg

DRUGS (7)
  1. TOPROL-XL [Concomitant]
     Indication: CARDIAC DISORDER
  2. HUMIRA [Suspect]
     Route: 058
     Dates: start: 20111001, end: 20120101
  3. ZETIA [Concomitant]
     Indication: BLOOD CHOLESTEROL INCREASED
  4. ASPIRIN [Concomitant]
     Indication: CARDIAC DISORDER
  5. ASACOL [Concomitant]
     Indication: CROHN'S DISEASE
  6. HUMIRA [Suspect]
     Indication: CROHN'S DISEASE
     Route: 058
     Dates: start: 20110101, end: 20110901
  7. LIPITOR [Concomitant]
     Indication: BLOOD CHOLESTEROL INCREASED

REACTIONS (7)
  - INTERVERTEBRAL DISC PROTRUSION [None]
  - BURNING SENSATION [None]
  - SLEEP DISORDER [None]
  - SPINAL CORD DISORDER [None]
  - EXOSTOSIS [None]
  - PARAESTHESIA [None]
  - HYPOAESTHESIA [None]
